FAERS Safety Report 8469589-X (Version None)
Quarter: 2012Q2

REPORT INFORMATION
  Report Type: 
  Country: None (occurrence: None)
  Receive Date: 20120626
  Receipt Date: 20120611
  Transmission Date: 20120825
  Serious: Yes (Hospitalization)
  Sender: FDA-Public Use
  Company Number: DE-TEVA-342973GER

PATIENT
  Age: 17 Year
  Sex: Male

DRUGS (13)
  1. SEVOFLURANE [Concomitant]
     Indication: MAINTENANCE OF ANAESTHESIA
     Dosage: ENDTIDAL CONCENTRATION 1.2 VOL%
     Route: 065
  2. FENTANYL [Suspect]
     Indication: ANAESTHESIA
     Dosage: 3 MICROG/KG FOR INDUCTION
     Route: 065
  3. HALOPERIDOL [Suspect]
     Indication: AGITATION
     Route: 065
  4. LEVOMEPROMAZINE [Suspect]
     Indication: AGITATION
     Route: 065
  5. NOREPINEPHRINE BITARTRATE [Concomitant]
     Indication: HYPOTENSION
     Route: 065
  6. FENTANYL [Suspect]
     Dosage: ADDITIONAL BOLUSES FOR MAINTENANCE, TOTAL 1.3MG
  7. CLONIDINE [Suspect]
     Indication: AGITATION
     Route: 065
  8. PROPOFOL [Concomitant]
     Indication: INDUCTION OF ANAESTHESIA
     Route: 065
  9. ROCURONIUM BROMIDE [Concomitant]
     Indication: ANAESTHESIA
     Dosage: 0.6 MG/KG FOR INDUCTION
     Route: 065
  10. ROCURONIUM BROMIDE [Concomitant]
     Dosage: ADDITIONAL BOLUSES FOR MAINTENANCE
     Route: 065
  11. FUROSEMIDE [Concomitant]
     Indication: PULMONARY OEDEMA
     Route: 042
  12. NALOXONE [Suspect]
     Indication: ACCIDENTAL OVERDOSE
     Route: 040
  13. PROPOFOL [Concomitant]
     Indication: ANAESTHESIA
     Route: 065

REACTIONS (4)
  - APNOEA [None]
  - DYSKINESIA [None]
  - PULMONARY OEDEMA [None]
  - ACCIDENTAL OVERDOSE [None]
